FAERS Safety Report 4786130-3 (Version None)
Quarter: 2005Q3

REPORT INFORMATION
  Report Type: 
  Country: None (occurrence: None)
  Receive Date: 20050929
  Receipt Date: 20050921
  Transmission Date: 20060218
  Serious: Yes (Life-Threatening, Hospitalization, Other)
  Sender: FDA-Public Use
  Company Number: CIP05002187

PATIENT
  Age: 81 Year
  Sex: Female

DRUGS (8)
  1. ACTONEL [Suspect]
     Dosage: 35 MG ONCE WEEKLY, ORAL
     Route: 048
     Dates: start: 20041008
  2. ARIMIDEX [Suspect]
     Indication: BREAST CANCER
     Dosage: 1 MG DAILY, ORAL
     Route: 048
     Dates: start: 20041008
  3. CALCIUM W/VITAMIN D NOS (CALCIUM, VITAMIN D NOS) [Suspect]
     Indication: OSTEOPOROSIS PROPHYLAXIS
     Dosage: 1000 MG DAILY, ORAL
     Route: 048
     Dates: start: 20041008
  4. HYDROCHLOROTHIAZIDE [Concomitant]
  5. PRAVACHOL [Concomitant]
  6. TOPROL-XL [Concomitant]
  7. AVAPRO [Concomitant]
  8. TIAZAC [Concomitant]

REACTIONS (7)
  - AORTIC VALVE CALCIFICATION [None]
  - BRADYCARDIA [None]
  - CORONARY ARTERY DISEASE [None]
  - MYOCARDIAL INFARCTION [None]
  - PULMONARY ARTERIAL PRESSURE INCREASED [None]
  - VENTRICULAR DYSFUNCTION [None]
  - VENTRICULAR HYPERTROPHY [None]
